FAERS Safety Report 7357336-4 (Version None)
Quarter: 2011Q1

REPORT INFORMATION
  Report Type: 
  Country: None (occurrence: None)
  Receive Date: 20110308
  Receipt Date: 20110218
  Transmission Date: 20110831
  Serious: Yes (Other)
  Sender: FDA-Public Use
  Company Number: 2011P1004481

PATIENT
  Age: 85 Year
  Sex: Male
  Weight: 124.7392 kg

DRUGS (2)
  1. CLOTRIMAZOLE [Suspect]
     Indication: TINEA CRURIS
     Dosage: BID;TOP
     Route: 061
     Dates: start: 20090101
  2. TRIAMTERENE [Concomitant]

REACTIONS (2)
  - DRUG INEFFECTIVE [None]
  - SURGERY [None]
